FAERS Safety Report 17566667 (Version 1)
Quarter: 2020Q1

REPORT INFORMATION
  Report Type: Spontaneous
  Country: US (occurrence: MX)
  Receive Date: 20200320
  Receipt Date: 20200320
  Transmission Date: 20200409
  Serious: Yes (Death)
  Sender: FDA-Public Use
  Company Number: US-PFIZER INC-2020121212

PATIENT
  Age: 75 Year
  Sex: Male

DRUGS (1)
  1. RAPAMUNE [Suspect]
     Active Substance: SIROLIMUS
     Indication: LIVER TRANSPLANT
     Dosage: 1 MG, 2X/DAY
     Route: 048

REACTIONS (4)
  - Respiratory arrest [Fatal]
  - Infarction [Fatal]
  - Product use in unapproved indication [Unknown]
  - Off label use [Unknown]
